FAERS Safety Report 4863198-7 (Version None)
Quarter: 2005Q4

REPORT INFORMATION
  Report Type: 
  Country: None (occurrence: None)
  Receive Date: 20051201
  Receipt Date: 20050727
  Transmission Date: 20060501
  Serious: No
  Sender: FDA-Public Use
  Company Number: 2005PV000533

PATIENT
  Age: 49 Year
  Sex: Female
  Weight: 90.7194 kg

DRUGS (18)
  1. BYETTA [Suspect]
     Indication: DIABETES MELLITUS
     Dosage: 5 MCG;BID;SC, 10 MCG;BID;SC
     Route: 058
     Dates: start: 20050629, end: 20050728
  2. BYETTA [Suspect]
     Indication: DIABETES MELLITUS
     Dosage: 5 MCG;BID;SC, 10 MCG;BID;SC
     Route: 058
     Dates: start: 20050729, end: 20050909
  3. CINESTIN [Concomitant]
  4. FORTAMET ER [Concomitant]
  5. MICARDIS [Concomitant]
  6. LEXAPRO [Concomitant]
  7. FUROSEMIDE [Concomitant]
  8. POTASSIUM [Concomitant]
  9. ZYRTEC [Concomitant]
  10. SPIRONOLACTONE [Concomitant]
  11. TORSEMIDE [Concomitant]
  12. ALBUTEROL SULFATE AUTOHALER [Concomitant]
  13. FLOVENT [Concomitant]
  14. EPINEPHRINE [Concomitant]
  15. ALLERGY INJECTION [Concomitant]
  16. FLUID PILL [Concomitant]
  17. EMETROL [Concomitant]
  18. REGLAN [Concomitant]

REACTIONS (6)
  - DIZZINESS [None]
  - FLUID RETENTION [None]
  - NAUSEA [None]
  - VOMITING [None]
  - WEIGHT DECREASED [None]
  - WEIGHT INCREASED [None]
